FAERS Safety Report 20373790 (Version 5)
Quarter: 2022Q2

REPORT INFORMATION
  Report Type: Other
  Country: US (occurrence: None)
  Receive Date: 20220125
  Receipt Date: 20220525
  Transmission Date: 20220720
  Serious: Yes (Death, Other)
  Sender: FDA-Public Use
  Company Number: US-ROCHE-3009763

PATIENT
  Age: 64 Year
  Sex: Male
  Weight: 65.3 kg

DRUGS (19)
  1. ATEZOLIZUMAB [Suspect]
     Active Substance: ATEZOLIZUMAB
     Indication: Product used for unknown indication
     Dosage: ATEZOLIZUMAB 1200 MG IV ON DAY 1,EVERY 21 DAYS UNTIL DISEASE PROGRESSION/DLT.
     Route: 042
     Dates: start: 20200107, end: 20200308
  2. ALBUTEROL [Concomitant]
     Active Substance: ALBUTEROL
  3. CLOTRIMAZOLE [Concomitant]
     Active Substance: CLOTRIMAZOLE
  4. FUROSEMIDE [Concomitant]
     Active Substance: FUROSEMIDE
  5. LEVOTHYROXINE [Concomitant]
     Active Substance: LEVOTHYROXINE
  6. LIDOCAINE\PRILOCAINE [Concomitant]
     Active Substance: LIDOCAINE\PRILOCAINE
  7. LISINOPRIL [Concomitant]
     Active Substance: LISINOPRIL
  8. LOPERAMIDE [Concomitant]
     Active Substance: LOPERAMIDE
  9. ONDANSETRON [Concomitant]
     Active Substance: ONDANSETRON
  10. POTASSIUM CHLORIDE [Concomitant]
     Active Substance: POTASSIUM CHLORIDE
  11. SPIRONOLACTONE [Concomitant]
     Active Substance: SPIRONOLACTONE
  12. SUCRALFATE [Concomitant]
     Active Substance: SUCRALFATE
  13. FOLIC ACID [Concomitant]
     Active Substance: FOLIC ACID
  14. CISPLATIN [Concomitant]
     Active Substance: CISPLATIN
  15. DEXAMETHASONE [Concomitant]
     Active Substance: DEXAMETHASONE
  16. CAMPTOSAR [Concomitant]
     Active Substance: IRINOTECAN HYDROCHLORIDE
  17. SODIUM CHLORIDE [Concomitant]
     Active Substance: SODIUM CHLORIDE
  18. ETOPOSIDE [Concomitant]
     Active Substance: ETOPOSIDE
     Dosage: 100 MG/M2 IV ON DAY 1,2,3,EVERY 21 DAY FOR 4 CYCLES
     Route: 042
  19. CARBOPLATIN [Concomitant]
     Active Substance: CARBOPLATIN
     Dosage: IV AUC 5 ON DAY 1
     Route: 042

REACTIONS (18)
  - Death [Fatal]
  - Ascites [Unknown]
  - Metastases to central nervous system [Unknown]
  - Pancytopenia [Unknown]
  - Hepatic cirrhosis [Unknown]
  - Nervous system disorder [Unknown]
  - Neck pain [Unknown]
  - Essential hypertension [Unknown]
  - Anaemia [Unknown]
  - Thrombocytopenia [Unknown]
  - Hypotonia [Unknown]
  - Headache [Unknown]
  - Muscular weakness [Unknown]
  - Gait disturbance [Unknown]
  - Urinary incontinence [Unknown]
  - Lymphadenopathy [Unknown]
  - Gastrointestinal disorder [Unknown]
  - Paratracheal lymphadenopathy [Unknown]

NARRATIVE: CASE EVENT DATE: 20200328
